FAERS Safety Report 5076388-8 (Version None)
Quarter: 2006Q3

REPORT INFORMATION
  Report Type: 
  Country: None (occurrence: None)
  Receive Date: 20060807
  Receipt Date: 20060726
  Transmission Date: 20061208
  Serious: Yes (Disabling)
  Sender: FDA-Public Use
  Company Number: 2006088304

PATIENT
  Age: 57 Year
  Sex: Male
  Weight: 140 kg

DRUGS (9)
  1. LIPITOR [Suspect]
     Indication: DIABETES MELLITUS
     Dosage: 10 MG (10 MG, 1 IN 1 D), ORAL
     Route: 048
     Dates: start: 20040801, end: 20060428
  2. ARTHROTEC [Concomitant]
  3. ATENOLOL [Concomitant]
  4. GLICLAZIDE (GLICLAZIDE) [Concomitant]
  5. AMLODIPINE [Concomitant]
  6. METFORMIN (METFORMIN) [Concomitant]
  7. RAMIPRIL [Concomitant]
  8. TAMSULOSIN HCL [Concomitant]
  9. DICLOFENAC SODIUM [Concomitant]

REACTIONS (10)
  - BLOOD CREATINE PHOSPHOKINASE INCREASED [None]
  - IMPAIRED DRIVING ABILITY [None]
  - INSOMNIA [None]
  - MOVEMENT DISORDER [None]
  - MUSCLE TIGHTNESS [None]
  - MUSCULOSKELETAL PAIN [None]
  - MYALGIA [None]
  - MYOPATHY [None]
  - PAIN IN EXTREMITY [None]
  - RHEUMATOID ARTHRITIS [None]
